FAERS Safety Report 6254518-X (Version None)
Quarter: 2009Q2

REPORT INFORMATION
  Report Type: 
  Country: None (occurrence: None)
  Receive Date: 20090630
  Receipt Date: 20090106
  Transmission Date: 20091009
  Serious: Yes (Life-Threatening)
  Sender: FDA-Public Use
  Company Number: US-SEPTODONT-200900039

PATIENT
  Age: 44 Year
  Sex: Female
  Weight: 61 kg

DRUGS (3)
  1. ARTICAINE HYDROCHLORIDE WITH EPINEPHRINE 1:100000 [Suspect]
     Indication: LOCAL ANAESTHESIA
     Dosage: DENTAL
     Route: 004
     Dates: start: 20051110
  2. CITANEST (PRILOCAINE) [Concomitant]
  3. LIDOCAINE [Concomitant]

REACTIONS (8)
  - FEELING HOT [None]
  - HYPOAESTHESIA ORAL [None]
  - LOSS OF CONSCIOUSNESS [None]
  - PROCEDURAL PAIN [None]
  - RESPIRATORY ARREST [None]
  - SEDATION [None]
  - SWELLING [None]
  - SWELLING FACE [None]
